FAERS Safety Report 11221183 (Version 2)
Quarter: 2015Q3

REPORT INFORMATION
  Report Type: Spontaneous
  Country: JP (occurrence: JP)
  Receive Date: 20150626
  Receipt Date: 20150717
  Transmission Date: 20151125
  Serious: Yes (Death)
  Sender: FDA-Public Use
  Company Number: JP-JNJFOC-20150519440

PATIENT
  Age: 68 Year
  Sex: Male

DRUGS (4)
  1. RISPERDAL [Suspect]
     Active Substance: RISPERIDONE
     Indication: AGGRESSION
     Dosage: 2 ML (1 ML ONCE IN THE MORNING AND 1 ML AT NIGHT)
     Route: 048
     Dates: start: 20150522, end: 20150525
  2. RISPERDAL [Suspect]
     Active Substance: RISPERIDONE
     Indication: RESTLESSNESS
     Dosage: 2 ML (1 ML ONCE IN THE MORNING AND 1 ML AT NIGHT)
     Route: 048
     Dates: start: 20150522, end: 20150525
  3. RISPERDAL [Suspect]
     Active Substance: RISPERIDONE
     Indication: DELIRIUM
     Dosage: 2 ML (1 ML ONCE IN THE MORNING AND 1 ML AT NIGHT)
     Route: 048
     Dates: start: 20150522, end: 20150525
  4. APIDRA [Concomitant]
     Active Substance: INSULIN GLULISINE
     Indication: DIABETES MELLITUS
     Route: 050

REACTIONS (8)
  - Hyperglycaemia [Fatal]
  - Pulmonary embolism [Fatal]
  - Altered state of consciousness [Fatal]
  - Product use issue [Unknown]
  - Blood pressure decreased [Fatal]
  - Mouth breathing [Fatal]
  - Malnutrition [Unknown]
  - Embolism [Fatal]

NARRATIVE: CASE EVENT DATE: 20150523
